FAERS Safety Report 22532106 (Version 1)
Quarter: 2023Q2

REPORT INFORMATION
  Report Type: Spontaneous
  Country: FR (occurrence: FR)
  Receive Date: 20230607
  Receipt Date: 20230607
  Transmission Date: 20230721
  Serious: Yes (Life-Threatening, Other)
  Sender: FDA-Public Use
  Company Number: None

PATIENT
  Age: 38 Year
  Sex: Female
  Weight: 61 kg

DRUGS (13)
  1. ESCITALOPRAM [Suspect]
     Active Substance: ESCITALOPRAM OXALATE
     Indication: Depression
     Dosage: UNK
     Route: 048
     Dates: start: 20220720, end: 20230325
  2. VALACYCLOVIR HYDROCHLORIDE [Suspect]
     Active Substance: VALACYCLOVIR HYDROCHLORIDE
     Indication: Prophylaxis
     Dosage: UNK
     Route: 048
     Dates: start: 20220720, end: 20230325
  3. ALPRAZOLAM [Suspect]
     Active Substance: ALPRAZOLAM
     Indication: Depression
     Dosage: UNK
     Route: 048
     Dates: start: 20220720, end: 20230325
  4. BENDAMUSTINE [Suspect]
     Active Substance: BENDAMUSTINE
     Indication: Non-Hodgkin^s lymphoma
     Dosage: 147 MILLIGRAM, CYCLICAL (STRENGTH: 2 MG/ML)
     Route: 042
     Dates: start: 20220720, end: 20221208
  5. ROXITHROMYCIN [Suspect]
     Active Substance: ROXITHROMYCIN
     Indication: Rhinitis
     Dosage: UNK
     Route: 048
     Dates: start: 20230214, end: 20230223
  6. EUCALYPTUS [Suspect]
     Active Substance: EUCALYPTUS GLOBULUS POLLEN\EUCALYPTUS GUM
     Indication: Rhinitis
     Dosage: UNK
     Route: 048
     Dates: start: 202301, end: 20230417
  7. THYME OIL [Suspect]
     Active Substance: THYME OIL
     Indication: Rhinitis
     Dosage: UNK
     Route: 048
     Dates: start: 202301, end: 20230417
  8. PINE NEEDLE OIL (PINUS SYLVESTRIS) [Suspect]
     Active Substance: PINE NEEDLE OIL (PINUS SYLVESTRIS)
     Indication: Rhinitis
     Dosage: UNK
     Route: 048
     Dates: start: 202301, end: 20230417
  9. PEPPERMINT OIL [Suspect]
     Active Substance: PEPPERMINT OIL
     Indication: Rhinitis
     Dosage: UNK
     Route: 048
     Dates: start: 202301, end: 20230417
  10. NIAOULI OIL [Suspect]
     Active Substance: NIAOULI OIL
     Indication: Rhinitis
     Dosage: UNK
     Route: 048
     Dates: start: 202301, end: 20230417
  11. ATOVAQUONE [Suspect]
     Active Substance: ATOVAQUONE
     Indication: Prophylaxis
     Dosage: UNK
     Route: 048
     Dates: start: 20220720, end: 20230325
  12. RITUXIMAB [Suspect]
     Active Substance: RITUXIMAB
     Indication: Non-Hodgkin^s lymphoma
     Dosage: 615 MILLIGRAM, CYCLICAL (6 CYCLES)
     Route: 042
     Dates: start: 20220720, end: 20221207
  13. CINNAMOMUM CAMPHORA LEAFY TWIG [Suspect]
     Active Substance: CINNAMOMUM CAMPHORA LEAFY TWIG
     Indication: Rhinitis
     Dosage: UNK
     Route: 048
     Dates: start: 202301, end: 20230417

REACTIONS (1)
  - Agranulocytosis [Recovered/Resolved]

NARRATIVE: CASE EVENT DATE: 20230306
